FAERS Safety Report 22098923 (Version 2)
Quarter: 2023Q1

REPORT INFORMATION
  Report Type: Spontaneous
  Country: ES (occurrence: ES)
  Receive Date: 20230315
  Receipt Date: 20230329
  Transmission Date: 20230417
  Serious: Yes (Death, Other)
  Sender: FDA-Public Use
  Company Number: ES-JNJFOC-20230242115

PATIENT
  Age: 63 Year
  Weight: 52 kg

DRUGS (3)
  1. BORTEZOMIB [Suspect]
     Active Substance: BORTEZOMIB
     Indication: Plasmacytoma
     Dosage: LAST DOSE DATE: 19/OCT/2021
     Route: 065
     Dates: start: 20210722, end: 20211019
  2. DARZALEX [Suspect]
     Active Substance: DARATUMUMAB
     Indication: Plasmacytoma
     Dosage: LAST DOSE WAS ON 19-OCT-2021
     Route: 065
     Dates: start: 20210722, end: 20211019
  3. DEXAMETHASONE [Suspect]
     Active Substance: DEXAMETHASONE
     Indication: Plasmacytoma
     Dosage: LAST DOSE DATE ; 19-10-2021
     Route: 065
     Dates: start: 20210722, end: 20211019

REACTIONS (3)
  - Death [Fatal]
  - Plasmacytoma [None]
  - Off label use [None]
